FAERS Safety Report 8877434 (Version 1)
Quarter: 2012Q4

REPORT INFORMATION
  Report Type: 
  Country: US (occurrence: US)
  Receive Date: 20121024
  Receipt Date: 20121024
  Transmission Date: 20130627
  Serious: No
  Sender: FDA-Public Use
  Company Number: US-PFIZER INC-2012260481

PATIENT
  Sex: Female

DRUGS (3)
  1. LEVOXYL [Suspect]
     Indication: THYROID HORMONE REPLACEMENT THERAPY
     Dosage: 125mg, daily
  2. LEVOXYL [Suspect]
     Dosage: 137 mg, daily
     Dates: start: 201203, end: 2012
  3. LEVOXYL [Suspect]
     Dosage: 125 mg, daily
     Dates: start: 201204

REACTIONS (4)
  - Blood thyroid stimulating hormone increased [Recovered/Resolved]
  - Blood thyroid stimulating hormone decreased [Recovered/Resolved]
  - Product solubility abnormal [Unknown]
  - Malaise [Recovering/Resolving]
